FAERS Safety Report 5833613-0 (Version None)
Quarter: 2008Q3

REPORT INFORMATION
  Report Type: 
  Country: None (occurrence: None)
  Receive Date: 20080805
  Receipt Date: 20080729
  Transmission Date: 20090109
  Serious: Yes (Hospitalization, Other)
  Sender: FDA-Public Use
  Company Number: US-AVENTIS-200814823US

PATIENT
  Age: 69 Year
  Sex: Female
  Weight: 90.72 kg

DRUGS (6)
  1. LANTUS [Suspect]
     Route: 058
     Dates: start: 20080201
  2. METOPROLOL [Concomitant]
     Dosage: DOSE: UNK
  3. HUMULIN R [Concomitant]
     Dosage: DOSE: UNK
  4. LASIX [Concomitant]
     Dosage: DOSE: UNK
  5. SYNTHROID [Concomitant]
     Dosage: DOSE: UNK
  6. VITAMIN TAB [Concomitant]
     Dosage: DOSE: UNK

REACTIONS (6)
  - BLOOD PRESSURE DECREASED [None]
  - CHEST PAIN [None]
  - INJECTION SITE PAIN [None]
  - PAIN IN EXTREMITY [None]
  - SWELLING [None]
  - WEIGHT INCREASED [None]
